FAERS Safety Report 22215651 (Version 2)
Quarter: 2023Q2

REPORT INFORMATION
  Report Type: Spontaneous
  Country: IT (occurrence: IT)
  Receive Date: 20230416
  Receipt Date: 20230417
  Transmission Date: 20230722
  Serious: Yes (Hospitalization)
  Sender: FDA-Public Use
  Company Number: None

PATIENT
  Age: 39 Year
  Sex: Male
  Weight: 70 kg

DRUGS (3)
  1. EXJADE [Suspect]
     Active Substance: DEFERASIROX
     Indication: Overchelation
     Dosage: 450 MG, Q48H (EXJADE 1 CP DA 360 MG E 1 CP DA 90 MG A GIORNI ALTERNI)
     Route: 048
     Dates: start: 202103, end: 202210
  2. EXJADE [Suspect]
     Active Substance: DEFERASIROX
     Dosage: 450 MG, Q48H (EXJADE 1 CP DA 360 MG E 1 CP DA 90 MG A GIORNI ALTERNI)
     Route: 048
     Dates: start: 202103, end: 202210
  3. ASPIRIN [Concomitant]
     Active Substance: ASPIRIN
     Indication: Product used for unknown indication
     Dosage: 100 MG (CARDIOASPIRIN MG 100 CPR GASTRORESISTENTI: 1 CP/DIE)
     Route: 048

REACTIONS (1)
  - Thrombophlebitis [Recovered/Resolved]

NARRATIVE: CASE EVENT DATE: 20220928
